FAERS Safety Report 6258893-1 (Version None)
Quarter: 2009Q3

REPORT INFORMATION
  Report Type: 
  Country: None (occurrence: None)
  Receive Date: 20090707
  Receipt Date: 20090629
  Transmission Date: 20100115
  Serious: Yes (Other)
  Sender: FDA-Public Use
  Company Number: US-GILEAD-2009-0022827

PATIENT
  Sex: Male
  Weight: 95.34 kg

DRUGS (18)
  1. LETAIRIS [Suspect]
     Indication: PULMONARY ARTERIAL HYPERTENSION
     Route: 048
     Dates: start: 20090619
  2. SILDENAFIL CITRATE [Concomitant]
  3. FUROSEMIDE [Concomitant]
  4. HYDROCHLOROTHIAZIDE [Concomitant]
  5. DIGOXIN [Concomitant]
  6. METOPROLOL TARTRATE [Concomitant]
  7. AMLODIPINE BESYLATE [Concomitant]
  8. ATROVENT [Concomitant]
  9. FORMOTEROL FUMARATE [Concomitant]
  10. ASPIRIN [Concomitant]
  11. ALLOPURINOL [Concomitant]
  12. METFORMIN [Concomitant]
  13. FINASTERIDE [Concomitant]
  14. SIMVASTATIN [Concomitant]
  15. MOMETASONE FUROATE [Concomitant]
  16. FLOMAX [Concomitant]
  17. POTASSIUM CHLORIDE [Concomitant]
  18. OMEPRAZOLE [Concomitant]

REACTIONS (2)
  - HAEMOPTYSIS [None]
  - NASAL CONGESTION [None]
